FAERS Safety Report 21376681 (Version 1)
Quarter: 2022Q3

REPORT INFORMATION
  Report Type: Spontaneous
  Country: CN (occurrence: CN)
  Receive Date: 20220926
  Receipt Date: 20220926
  Transmission Date: 20221027
  Serious: Yes (Other)
  Sender: FDA-Public Use
  Company Number: None

PATIENT
  Age: 9 Year
  Sex: Female
  Weight: 25.6 kg

DRUGS (8)
  1. CYCLOPHOSPHAMIDE [Suspect]
     Active Substance: CYCLOPHOSPHAMIDE
     Indication: Thalassaemia beta
     Dosage: 1488 MG, QD, DILUTED WITH 0.9% SODIUM CHLORIDE 250 ML, (PUMP)
     Route: 041
     Dates: start: 20220811, end: 20220813
  2. SODIUM CHLORIDE [Suspect]
     Active Substance: SODIUM CHLORIDE
     Indication: Medication dilution
     Dosage: 250 ML, QD, DILUTED IN CYCLOPHOSPHAMIDE 1488 MG, (PUMP)
     Route: 041
     Dates: start: 20220811, end: 20220813
  3. SODIUM CHLORIDE [Suspect]
     Active Substance: SODIUM CHLORIDE
     Dosage: 20 ML, ONCE/2 DAYS, DILUTED IN THIOTEPA 120 MG
     Route: 041
     Dates: start: 20220816, end: 20220817
  4. SODIUM CHLORIDE [Suspect]
     Active Substance: SODIUM CHLORIDE
     Dosage: 50 ML, QD, DILUTED IN FLUDARABINE PHOSPHATE 50 MG
     Route: 041
     Dates: start: 20220815, end: 20220819
  5. SODIUM CHLORIDE [Suspect]
     Active Substance: SODIUM CHLORIDE
     Dosage: 50 ML, QD, DILUTED IN BUSULFAN 360 MG
     Route: 041
     Dates: start: 20220813, end: 20220816
  6. THIOTEPA [Suspect]
     Active Substance: THIOTEPA
     Indication: Thalassaemia beta
     Dosage: 120 MG, ONCE/2 DAYS, DILUTED WITH 0.9% SODIUM CHLORIDE 20 ML
     Route: 041
     Dates: start: 20220816, end: 20220817
  7. FLUDARABINE PHOSPHATE [Suspect]
     Active Substance: FLUDARABINE PHOSPHATE
     Indication: Thalassaemia beta
     Dosage: 50 MG, QD, DILUTED WITH 0.9% SODIUM CHLORIDE 50 ML
     Route: 041
     Dates: start: 20220815, end: 20220819
  8. BUSULFAN [Suspect]
     Active Substance: BUSULFAN
     Indication: Thalassaemia beta
     Dosage: 360 MG, QD, DILUTED WITH 0.9% SODIUM CHLORIDE 50 ML
     Route: 041
     Dates: start: 20220813, end: 20220816

REACTIONS (2)
  - Myelosuppression [Recovering/Resolving]
  - Platelet count decreased [Recovering/Resolving]

NARRATIVE: CASE EVENT DATE: 20220828
